FAERS Safety Report 6086668-5 (Version None)
Quarter: 2009Q1

REPORT INFORMATION
  Report Type: 
  Country: None (occurrence: None)
  Receive Date: 20090223
  Receipt Date: 20090123
  Transmission Date: 20090719
  Serious: No
  Sender: FDA-Public Use
  Company Number: US-BAYER-200910677NA

PATIENT
  Age: 28 Year
  Sex: Male

DRUGS (1)
  1. AVELOX [Suspect]
     Indication: SINUSITIS

REACTIONS (3)
  - DYSPNOEA [None]
  - FLUSHING [None]
  - URTICARIA [None]
